FAERS Safety Report 20359957 (Version 16)
Quarter: 2023Q2

REPORT INFORMATION
  Report Type: Other
  Country: GB (occurrence: None)
  Receive Date: 20220121
  Receipt Date: 20230615
  Transmission Date: 20230722
  Serious: Yes (Hospitalization, Other)
  Sender: FDA-Public Use
  Company Number: GB-ROCHE-3001491

PATIENT
  Age: 47 Year
  Sex: Female
  Weight: 106 kg

DRUGS (53)
  1. PERTUZUMAB [Suspect]
     Active Substance: PERTUZUMAB
     Indication: Breast cancer metastatic
     Route: 042
     Dates: start: 20181120
  2. PERTUZUMAB [Suspect]
     Active Substance: PERTUZUMAB
     Route: 042
     Dates: start: 20171108, end: 20171129
  3. PERTUZUMAB [Suspect]
     Active Substance: PERTUZUMAB
     Route: 042
     Dates: start: 20171129, end: 20210924
  4. PERTUZUMAB [Suspect]
     Active Substance: PERTUZUMAB
     Route: 058
     Dates: start: 20211015
  5. TRASTUZUMAB [Suspect]
     Active Substance: TRASTUZUMAB
     Indication: Breast cancer metastatic
     Route: 041
     Dates: start: 20171108, end: 20171129
  6. TRASTUZUMAB [Suspect]
     Active Substance: TRASTUZUMAB
     Route: 042
     Dates: start: 20171129, end: 20210903
  7. DOCETAXEL [Suspect]
     Active Substance: DOCETAXEL
     Indication: Breast cancer metastatic
     Route: 042
     Dates: start: 20171108, end: 20180131
  8. TRASTUZUMAB [Suspect]
     Active Substance: TRASTUZUMAB
     Indication: Breast cancer metastatic
     Route: 058
     Dates: start: 20171129
  9. TRASTUZUMAB [Suspect]
     Active Substance: TRASTUZUMAB
     Route: 058
     Dates: start: 20211015
  10. ONDANSETRON [Concomitant]
     Active Substance: ONDANSETRON
     Indication: Diarrhoea
     Route: 042
     Dates: start: 20181002, end: 20181002
  11. ONDANSETRON [Concomitant]
     Active Substance: ONDANSETRON
     Indication: Vomiting
  12. NITROFURANTOIN [Concomitant]
     Active Substance: NITROFURANTOIN
     Indication: Urinary tract infection
     Route: 048
     Dates: start: 20181103, end: 20181109
  13. MORPHINE [Concomitant]
     Active Substance: MORPHINE
     Indication: Diarrhoea
     Route: 042
     Dates: start: 20181002, end: 20181002
  14. MORPHINE [Concomitant]
     Active Substance: MORPHINE
     Indication: Vomiting
  15. METFORMIN [Concomitant]
     Active Substance: METFORMIN HYDROCHLORIDE
  16. METFORMIN [Concomitant]
     Active Substance: METFORMIN HYDROCHLORIDE
     Route: 048
  17. RAMIPRIL [Concomitant]
     Active Substance: RAMIPRIL
     Route: 048
  18. SIMVASTATIN [Concomitant]
     Active Substance: SIMVASTATIN
     Route: 048
  19. LINEZOLID [Concomitant]
     Active Substance: LINEZOLID
     Indication: Vascular device infection
     Route: 048
     Dates: start: 20191125, end: 20191130
  20. BECLOMETHASONE DIPROPIONATE [Concomitant]
     Active Substance: BECLOMETHASONE DIPROPIONATE
     Dosage: 2 PUFF
  21. ALBUTEROL [Concomitant]
     Active Substance: ALBUTEROL
     Dosage: 2 PUFF
  22. OMEPRAZOLE [Concomitant]
     Active Substance: OMEPRAZOLE
     Route: 048
     Dates: start: 201710
  23. SODIUM PICOSULFATE [Concomitant]
     Active Substance: SODIUM PICOSULFATE
     Indication: Constipation
     Dosage: 10 OTHER
     Route: 048
  24. OXYCODONE [Concomitant]
     Active Substance: OXYCODONE
     Indication: Pain
     Route: 048
  25. CLONAZEPAM [Concomitant]
     Active Substance: CLONAZEPAM
     Route: 048
     Dates: start: 202006
  26. CLONAZEPAM [Concomitant]
     Active Substance: CLONAZEPAM
     Route: 048
  27. QUETIAPINE [Concomitant]
     Active Substance: QUETIAPINE
     Indication: Depressed mood
     Route: 048
     Dates: start: 2020
  28. QUETIAPINE [Concomitant]
     Active Substance: QUETIAPINE
     Route: 048
     Dates: end: 2020
  29. LACTULOSE [Concomitant]
     Active Substance: LACTULOSE
     Route: 048
  30. ERYTHROMYCIN BASE [Concomitant]
     Active Substance: ERYTHROMYCIN
     Indication: Vascular device infection
     Route: 048
     Dates: start: 2020, end: 202007
  31. VANCOMYCIN [Concomitant]
     Active Substance: VANCOMYCIN
     Indication: Vascular device infection
     Route: 042
     Dates: start: 20200612, end: 202006
  32. CALCIUM CARBONATE\CHOLECALCIFEROL [Concomitant]
     Active Substance: CALCIUM CARBONATE\CHOLECALCIFEROL
     Dosage: 1,5G + 400 UNITS
     Route: 048
  33. OSELTAMIVIR [Concomitant]
     Active Substance: OSELTAMIVIR
  34. BUDESONIDE\FORMOTEROL [Concomitant]
     Active Substance: BUDESONIDE\FORMOTEROL
     Dosage: INHALE ONE PUFF TWICE DAILY
     Route: 050
  35. TIOTROPIUM [Concomitant]
     Active Substance: TIOTROPIUM
     Dosage: INHALE ONE CAPSULE DAILY, IHNALATION POWDER CAPSULE
  36. BUTYLSCOPOLAMINE BROMIDE [Concomitant]
     Active Substance: BUTYLSCOPOLAMINE BROMIDE
     Dosage: TAKE 1 AT BED TIME
     Route: 048
  37. LANSOPRAZOLE [Concomitant]
     Active Substance: LANSOPRAZOLE
     Dosage: ENTERIC COTED, TAKE ONE EACH MORNING
  38. METOCLOPRAMIDE [Concomitant]
     Active Substance: METOCLOPRAMIDE
     Route: 048
  39. CIPROFLOXACIN [Concomitant]
     Active Substance: CIPROFLOXACIN
  40. METRONIDAZOLE [Concomitant]
     Active Substance: METRONIDAZOLE
  41. GENTAMICIN [Concomitant]
     Active Substance: GENTAMICIN
  42. FLOXACILLIN [Concomitant]
     Active Substance: FLUCLOXACILLIN
  43. DEXAMETHASONE [Concomitant]
     Active Substance: DEXAMETHASONE
  44. BARICITINIB [Concomitant]
     Active Substance: BARICITINIB
  45. IPRATROPIUM [Concomitant]
     Active Substance: IPRATROPIUM
  46. ENOXAPARIN [Concomitant]
     Active Substance: ENOXAPARIN
  47. CLOTRIMAZOLE [Concomitant]
     Active Substance: CLOTRIMAZOLE
  48. NOVORAPID [Concomitant]
     Active Substance: INSULIN ASPART
  49. MEROPENEM [Concomitant]
     Active Substance: MEROPENEM
  50. SODIUM CHLORIDE [Concomitant]
     Active Substance: SODIUM CHLORIDE
  51. DENOSUMAB [Concomitant]
     Active Substance: DENOSUMAB
  52. AMITRIPTYLINE [Concomitant]
     Active Substance: AMITRIPTYLINE
  53. CANDESARTAN [Concomitant]
     Active Substance: CANDESARTAN

REACTIONS (7)
  - Appendicitis [Recovered/Resolved]
  - Abdominal pain [Recovered/Resolved]
  - Vascular device infection [Recovered/Resolved]
  - COVID-19 [Recovered/Resolved]
  - Asthma [Recovered/Resolved with Sequelae]
  - Influenza [Recovered/Resolved]
  - COVID-19 [Recovered/Resolved with Sequelae]

NARRATIVE: CASE EVENT DATE: 20211028
